FAERS Safety Report 9493871 (Version 1)
Quarter: 2013Q3

REPORT INFORMATION
  Report Type: Spontaneous
  Country: FR (occurrence: FR)
  Receive Date: 20130902
  Receipt Date: 20130902
  Transmission Date: 20140515
  Serious: Yes (Hospitalization)
  Sender: FDA-Public Use
  Company Number: FR-SANOFI-AVENTIS-2013SA085854

PATIENT
  Age: 75 Year
  Sex: Female

DRUGS (15)
  1. LASILIX [Suspect]
     Indication: PRODUCT USED FOR UNKNOWN INDICATION
     Route: 048
     Dates: end: 20130605
  2. PRAVASTATIN SODIUM [Concomitant]
     Route: 048
     Dates: end: 20130605
  3. GLUCOPHAGE [Concomitant]
     Indication: TYPE 2 DIABETES MELLITUS
     Route: 048
     Dates: end: 20130605
  4. ZANIDIP [Concomitant]
     Route: 048
     Dates: end: 20130605
  5. LOVENOX [Concomitant]
     Route: 058
  6. LYRICA [Concomitant]
     Route: 048
  7. UVEDOSE [Concomitant]
     Dosage: EVERY 2 WEEKS
     Route: 048
     Dates: end: 20130605
  8. LEXOMIL [Concomitant]
     Route: 048
     Dates: end: 20130605
  9. LANTUS [Concomitant]
     Indication: DIABETES MELLITUS
     Route: 058
  10. DISCOTRINE [Concomitant]
     Route: 062
  11. CORDARONE [Concomitant]
     Route: 048
  12. BISOCE [Concomitant]
     Route: 048
     Dates: end: 20130605
  13. APIDRA [Concomitant]
     Indication: DIABETES MELLITUS
     Dosage: 6 IU-9 IU-12IU
     Route: 058
  14. CALCIUM/COLECALCIFEROL [Concomitant]
     Route: 048
     Dates: end: 20130605
  15. DAFALGAN [Concomitant]
     Dosage: 1 G TID WHEN NEEDED
     Route: 048
     Dates: end: 20130605

REACTIONS (9)
  - Lactic acidosis [Recovered/Resolved]
  - Confusional state [Unknown]
  - Blood lactic acid increased [Recovered/Resolved]
  - Disorientation [Unknown]
  - Agitation [Unknown]
  - Blood pH increased [Unknown]
  - Renal failure acute [Recovered/Resolved]
  - Blood creatinine increased [Recovered/Resolved]
  - Creatinine renal clearance decreased [Recovering/Resolving]
